FAERS Safety Report 7449756-4 (Version None)
Quarter: 2011Q2

REPORT INFORMATION
  Report Type: 
  Country: None (occurrence: None)
  Receive Date: 20110502
  Receipt Date: 20110418
  Transmission Date: 20111010
  Serious: Yes (Hospitalization, Disabling)
  Sender: FDA-Public Use
  Company Number: US-RANBAXY-2011US-43960

PATIENT
  Age: 13 Year
  Sex: Female

DRUGS (2)
  1. CLINDAMYCIN [Suspect]
     Indication: STAPHYLOCOCCAL INFECTION
     Dosage: UNK, UNK
     Route: 048
     Dates: end: 20080628
  2. BACTRIM [Suspect]
     Indication: STAPHYLOCOCCAL INFECTION
     Route: 048
     Dates: end: 20080628

REACTIONS (2)
  - STEVENS-JOHNSON SYNDROME [None]
  - TOXIC EPIDERMAL NECROLYSIS [None]
